FAERS Safety Report 24143526 (Version 1)
Quarter: 2024Q3

REPORT INFORMATION
  Report Type: Report from Study
  Country: US (occurrence: US)
  Receive Date: 20240727
  Receipt Date: 20240727
  Transmission Date: 20241017
  Serious: Yes (Other)
  Sender: ABBVIE
  Company Number: US-ABBVIE-5851566

PATIENT
  Age: 81 Year
  Sex: Male

DRUGS (19)
  1. VENCLEXTA [Suspect]
     Active Substance: VENETOCLAX
     Indication: Acute myeloid leukaemia
     Dosage: DAY1 :100MG
     Route: 048
     Dates: start: 20240624
  2. VENCLEXTA [Suspect]
     Active Substance: VENETOCLAX
     Indication: Acute myeloid leukaemia
     Dosage: DAY2: 200MG
     Route: 048
  3. VENCLEXTA [Suspect]
     Active Substance: VENETOCLAX
     Indication: Acute myeloid leukaemia
     Dosage: DAY 3: 300MG
     Route: 048
  4. VENCLEXTA [Suspect]
     Active Substance: VENETOCLAX
     Indication: Acute myeloid leukaemia
     Dosage: DAY 4: 400MG
     Route: 048
  5. AZACITIDINE [Concomitant]
     Active Substance: AZACITIDINE
     Indication: Product used for unknown indication
     Dosage: 75MG/M2 D1-7
     Route: 058
  6. PROVENTIL HFA [Concomitant]
     Active Substance: ALBUTEROL SULFATE
     Indication: Dyspnoea
     Dosage: 90 MCG/ACT. INHALE 1 PUFF EVERY FOUR (4) HOURS AS NEEDED FOR WHEEZING OR SHORTNESS OF BREATH (SHO...
     Route: 055
  7. TYLENOL [Concomitant]
     Active Substance: ACETAMINOPHEN
     Indication: Product used for unknown indication
     Dosage: TAKE 2 TABLETS (1,000 MG TOTAL) BY MOUTH TWO (2) TIMES DAILY
     Route: 048
  8. TOPROL XL [Concomitant]
     Active Substance: METOPROLOL SUCCINATE
     Indication: Product used for unknown indication
     Dosage: TAKE 1 TABLET (25 MG TOTAL) BY MOUTH DAILY?XL
     Route: 048
  9. NAPROSYN [Concomitant]
     Active Substance: NAPROXEN
     Indication: Product used for unknown indication
     Dosage: TAKE 1 TABLET (500 MG TOTAL) BY MOUTH TWO (2) TIMES DAILY WITH MEALS
     Route: 048
  10. PRILOSEC [Concomitant]
     Active Substance: OMEPRAZOLE MAGNESIUM
     Indication: Product used for unknown indication
     Dosage: TAKE 1 CAPSULE (20 MG TOTAL) BY MOUTH DAILY.
     Route: 048
  11. VENTOLIN HFA [Concomitant]
     Active Substance: ALBUTEROL SULFATE
     Indication: Wheezing
     Dosage: 90 MCG/ACT. INHALE 1 PUFF EVERY FOUR (4) HOURS AS NEEDED FOR WHEEZING OR SHORTNESS OF BREATH (SHO...
     Route: 055
  12. ZYLOPRIM [Concomitant]
     Active Substance: ALLOPURINOL
     Indication: Product used for unknown indication
     Dosage: TAKE 1 TABLET (300 MG TOTAL) BY MOUTH DAILY
  13. FLOMAX [Concomitant]
     Active Substance: TAMSULOSIN HYDROCHLORIDE
     Indication: Product used for unknown indication
  14. ULTRAM [Concomitant]
     Active Substance: TRAMADOL HYDROCHLORIDE
     Indication: Pain
     Dosage: TAKE 1 TABLET (50 MG TOTAL) BY MOUTH EVERY SIX (6) HOURS AS NEEDED FOR SEVERE PAIN (PAIN SCALE 7-...
     Route: 048
  15. VALTREX [Concomitant]
     Active Substance: VALACYCLOVIR HYDROCHLORIDE
     Indication: Product used for unknown indication
     Dosage: TAKE 1 TABLET (500MG TOTAL) BY MOUTH 2 TIMES DAILY
     Route: 048
  16. LEXAPRO [Concomitant]
     Active Substance: ESCITALOPRAM OXALATE
     Indication: Product used for unknown indication
     Dosage: 1 TABLET (10 MG TOTAL) BY PER J TUBE ROUTE DAILY.
  17. TAMBOCOR [Concomitant]
     Active Substance: FLECAINIDE ACETATE
     Indication: Product used for unknown indication
     Dosage: TAKE 1 TABLET (50 MG TOTAL) BY MOUTH TWO (2) TIMES DAILY.
     Route: 048
  18. FOLVITE [Concomitant]
     Active Substance: FOLIC ACID
     Indication: Product used for unknown indication
     Dosage: TAKE 1 TABLET (1 MG TOTAL) BY MOUTH DAILY
     Route: 048
  19. XARELTO [Concomitant]
     Active Substance: RIVAROXABAN
     Indication: Product used for unknown indication
     Dosage: TAKE 1 TABLET (20 MG TOTAL) BY MOUTH DAILY.
     Route: 048

REACTIONS (3)
  - Bone marrow transplant [Unknown]
  - Dyspnoea [Unknown]
  - Asthenia [Unknown]
